FAERS Safety Report 7809004-X (Version None)
Quarter: 2011Q4

REPORT INFORMATION
  Report Type: 
  Country: None (occurrence: None)
  Receive Date: 20111012
  Receipt Date: 20111003
  Transmission Date: 20120403
  Serious: Yes (Other)
  Sender: FDA-Public Use
  Company Number: JP-SANOFI-AVENTIS-2011SA058701

PATIENT
  Sex: Male

DRUGS (1)
  1. PLAVIX [Suspect]
     Indication: MYOCARDIAL INFARCTION
     Dosage: STRENGTH: 75 MG
     Route: 065
     Dates: start: 20101201, end: 20110907

REACTIONS (2)
  - WEIGHT DECREASED [None]
  - DECREASED APPETITE [None]
